FAERS Safety Report 6162931-4 (Version None)
Quarter: 2009Q2

REPORT INFORMATION
  Report Type: 
  Country: None (occurrence: None)
  Receive Date: 20090421
  Receipt Date: 20090413
  Transmission Date: 20091009
  Serious: Yes (Life-Threatening)
  Sender: FDA-Public Use
  Company Number: US-GENENTECH-281438

PATIENT
  Sex: Female
  Weight: 42.177 kg

DRUGS (1)
  1. XOLAIR [Suspect]
     Indication: ASTHMA
     Dosage: 300 MG, Q4W
     Route: 058
     Dates: start: 20090306

REACTIONS (3)
  - ABDOMINAL PAIN [None]
  - STRIDOR [None]
  - URTICARIA [None]
